FAERS Safety Report 6580273-X (Version None)
Quarter: 2010Q1

REPORT INFORMATION
  Report Type: 
  Country: None (occurrence: None)
  Receive Date: 20100212
  Receipt Date: 20100208
  Transmission Date: 20100710
  Serious: Yes (Hospitalization)
  Sender: FDA-Public Use
  Company Number: GB-TEVA-223712ISR

PATIENT
  Age: 32 Year
  Sex: Male

DRUGS (4)
  1. METOCLOPRAMIDE [Suspect]
  2. ATAZANAVIR SULFATE [Suspect]
  3. RITONAVIR [Suspect]
  4. TRUVADA [Suspect]

REACTIONS (1)
  - NEPHROLITHIASIS [None]
